FAERS Safety Report 7944749-2 (Version None)
Quarter: 2011Q4

REPORT INFORMATION
  Report Type: 
  Country: None (occurrence: None)
  Receive Date: 20111129
  Receipt Date: 20111118
  Transmission Date: 20120403
  Serious: Yes (Hospitalization)
  Sender: FDA-Public Use
  Company Number: CA-JNJFOC-20111108833

PATIENT
  Sex: Female
  Weight: 39.5 kg

DRUGS (2)
  1. REMICADE [Suspect]
     Indication: CROHN'S DISEASE
     Route: 042
     Dates: start: 20070907
  2. IMURAN [Concomitant]
     Route: 065

REACTIONS (4)
  - NECROSIS [None]
  - ADHESION [None]
  - SMALL INTESTINAL OBSTRUCTION [None]
  - PULMONARY EMBOLISM [None]
